FAERS Safety Report 18110816 (Version 3)
Quarter: 2020Q4

REPORT INFORMATION
  Report Type: Spontaneous
  Country: JP (occurrence: JP)
  Receive Date: 20200805
  Receipt Date: 20201014
  Transmission Date: 20210113
  Serious: Yes (Death)
  Sender: FDA-Public Use
  Company Number: JP-INCYTE CORPORATION-2020IN007520

PATIENT

DRUGS (6)
  1. JAKAVI [Suspect]
     Active Substance: RUXOLITINIB
     Indication: MYELOPROLIFERATIVE NEOPLASM
     Dosage: 5 MG, BID
     Route: 048
     Dates: start: 20200514, end: 20200527
  2. FEBURIC [Concomitant]
     Active Substance: FEBUXOSTAT
     Indication: HYPERURICAEMIA
     Dosage: 10 MG
     Route: 048
     Dates: start: 20200430, end: 20200527
  3. FUROSEMIDE. [Concomitant]
     Active Substance: FUROSEMIDE
     Indication: OLIGURIA
     Dosage: 40 MG
     Route: 048
     Dates: start: 20200430, end: 20200527
  4. CARNACULIN [KALLIDINOGENASE] [Concomitant]
     Indication: OLIGURIA
     Dosage: UNK
     Route: 048
     Dates: start: 20200430, end: 20200527
  5. TRAMAL [Concomitant]
     Active Substance: TRAMADOL
     Indication: PAIN
     Dosage: 25 MG
     Route: 048
     Dates: start: 20200430, end: 20200527
  6. SAMSCA [Concomitant]
     Active Substance: TOLVAPTAN
     Indication: OLIGURIA
     Dosage: 7.5 MG
     Route: 048
     Dates: start: 20200525, end: 20200527

REACTIONS (4)
  - Exsanguination [Fatal]
  - Myeloproliferative neoplasm [Fatal]
  - Product use in unapproved indication [Unknown]
  - Gastrointestinal haemorrhage [Fatal]

NARRATIVE: CASE EVENT DATE: 20200528
